FAERS Safety Report 5831890-3 (Version None)
Quarter: 2008Q3

REPORT INFORMATION
  Report Type: 
  Country: None (occurrence: None)
  Receive Date: 20080722
  Receipt Date: 20071219
  Transmission Date: 20090109
  Serious: Yes (Hospitalization)
  Sender: FDA-Public Use
  Company Number: 2007BI026781

PATIENT
  Age: 46 Year
  Sex: Female

DRUGS (3)
  1. AVONEX [Suspect]
     Indication: MULTIPLE SCLEROSIS
     Dosage: 30 UG;QW;IM; 30 UG;QW;IM; 30 UG;QW;IM
     Route: 030
     Dates: start: 20000805, end: 20050808
  2. AVONEX [Suspect]
     Indication: MULTIPLE SCLEROSIS
     Dosage: 30 UG;QW;IM; 30 UG;QW;IM; 30 UG;QW;IM
     Route: 030
     Dates: start: 20050101, end: 20070101
  3. AVONEX [Suspect]
     Indication: MULTIPLE SCLEROSIS
     Dosage: 30 UG;QW;IM; 30 UG;QW;IM; 30 UG;QW;IM
     Route: 030
     Dates: start: 20071221

REACTIONS (5)
  - CONTUSION [None]
  - FALL [None]
  - HAND FRACTURE [None]
  - JOINT SPRAIN [None]
  - MULTIPLE SCLEROSIS RELAPSE [None]
